FAERS Safety Report 7592733-3 (Version None)
Quarter: 2011Q3

REPORT INFORMATION
  Report Type: 
  Country: None (occurrence: None)
  Receive Date: 20110706
  Receipt Date: 20110629
  Transmission Date: 20111222
  Serious: Yes (Other)
  Sender: FDA-Public Use
  Company Number: US-PFIZER INC-2011147609

PATIENT
  Sex: Female

DRUGS (1)
  1. ZMAX [Suspect]
     Indication: CHLAMYDIAL INFECTION
     Dosage: 2 MG, UNK
     Dates: start: 20110601

REACTIONS (2)
  - PAIN [None]
  - CHLAMYDIAL INFECTION [None]
